FAERS Safety Report 6342124-8 (Version None)
Quarter: 2009Q3

REPORT INFORMATION
  Report Type: 
  Country: None (occurrence: None)
  Receive Date: 20090903
  Receipt Date: 20090903
  Transmission Date: 20100115
  Serious: No
  Sender: FDA-Public Use
  Company Number: None

PATIENT
  Sex: Female
  Weight: 53.5244 kg

DRUGS (2)
  1. ZOLOFT [Suspect]
     Indication: DEPRESSION
     Dosage: 100MGS DAILY PO
     Route: 048
     Dates: start: 20080101, end: 20080701
  2. ZOLOFT [Suspect]
     Indication: DEPRESSION
     Dosage: 100MGS DAILY PO
     Route: 048
     Dates: start: 20090101, end: 20090301

REACTIONS (3)
  - ABDOMINAL PAIN [None]
  - DIARRHOEA [None]
  - NAUSEA [None]
